FAERS Safety Report 8268035-9 (Version None)
Quarter: 2012Q2

REPORT INFORMATION
  Report Type: 
  Country: None (occurrence: None)
  Receive Date: 20120409
  Receipt Date: 20120403
  Transmission Date: 20120825
  Serious: Yes (Other)
  Sender: FDA-Public Use
  Company Number: US-PFIZER INC-2012021919

PATIENT
  Age: 49 Year
  Sex: Male

DRUGS (2)
  1. GLYBURIDE [Suspect]
     Indication: SUICIDE ATTEMPT
     Dosage: 350 MG, UNK
     Route: 048
  2. METFORMIN HCL [Suspect]
     Indication: SUICIDE ATTEMPT
     Dosage: 52 G, UNK
     Route: 048

REACTIONS (6)
  - LACTIC ACIDOSIS [None]
  - INTENTIONAL OVERDOSE [None]
  - DEAFNESS NEUROSENSORY [None]
  - HYPOGLYCAEMIA [None]
  - HYPOTENSION [None]
  - RESPIRATORY FAILURE [None]
